FAERS Safety Report 22539847 (Version 1)
Quarter: 2023Q2

REPORT INFORMATION
  Report Type: Spontaneous
  Country: US (occurrence: US)
  Receive Date: 20230609
  Receipt Date: 20230609
  Transmission Date: 20230721
  Serious: Yes (Other)
  Sender: FDA-Public Use
  Company Number: US-002147023-NVSC2021US092085

PATIENT
  Age: 33 Year
  Sex: Female

DRUGS (11)
  1. DIGOXIN [Suspect]
     Active Substance: DIGOXIN
     Indication: Tachycardia foetal
     Dosage: LOAD 500 UG (3 DOSES)
     Route: 048
  2. DIGOXIN [Suspect]
     Active Substance: DIGOXIN
     Indication: Hydrops foetalis
     Dosage: MAINTENANCE 250 MG EVERY 12 H
     Route: 048
  3. DIGOXIN [Suspect]
     Active Substance: DIGOXIN
     Dosage: 88 UG/KG (64 UG) ONCE/SINGLE
     Route: 030
  4. METOPROLOL [Suspect]
     Active Substance: METOPROLOL
     Indication: Tachycardia foetal
     Dosage: 50 MG, QD
     Route: 048
  5. METOPROLOL [Suspect]
     Active Substance: METOPROLOL
     Dosage: 100 MG, QD
     Route: 048
  6. AMIODARONE [Suspect]
     Active Substance: AMIODARONE
     Indication: Tachycardia foetal
     Dosage: 5 MG, ONCE/SINGLE
     Route: 065
  7. AMIODARONE [Suspect]
     Active Substance: AMIODARONE
     Dosage: 600 MG, Q8H
     Route: 048
  8. AMIODARONE [Suspect]
     Active Substance: AMIODARONE
     Dosage: 800 MG, QD
     Route: 048
  9. FLECAINIDE [Suspect]
     Active Substance: FLECAINIDE
     Indication: Tachycardia foetal
     Dosage: 150 MG EVERY 12 H
     Route: 048
  10. SOTALOL [Suspect]
     Active Substance: SOTALOL
     Indication: Tachycardia foetal
     Dosage: 160 MG EVERY 12 H
     Route: 048
  11. SOTALOL [Suspect]
     Active Substance: SOTALOL
     Dosage: 200 MG, BID
     Route: 048

REACTIONS (3)
  - Premature delivery [Unknown]
  - Maternal exposure during pregnancy [Unknown]
  - Product use in unapproved indication [Unknown]
